FAERS Safety Report 9363008 (Version 1)
Quarter: 2013Q2

REPORT INFORMATION
  Report Type: Spontaneous
  Country: US (occurrence: None)
  Receive Date: 20130621
  Receipt Date: 20130621
  Transmission Date: 20140414
  Serious: No
  Sender: FDA-Public Use
  Company Number: None

PATIENT
  Age: 65 Year
  Sex: Female

DRUGS (1)
  1. TARCEVA [Suspect]
     Indication: ILL-DEFINED DISORDER
     Route: 048
     Dates: start: 20120112, end: 20130620

REACTIONS (5)
  - Diarrhoea [None]
  - Abdominal pain upper [None]
  - Fatigue [None]
  - No therapeutic response [None]
  - Haemorrhoids [None]
